FAERS Safety Report 8606736 (Version 3)
Quarter: 2014Q1

REPORT INFORMATION
  Report Type: Spontaneous
  Country: US (occurrence: US)
  Receive Date: 20120611
  Receipt Date: 20140129
  Transmission Date: 20141002
  Serious: No
  Sender: FDA-Public Use
  Company Number: US-ASTRAZENECA-2012SE35291

PATIENT
  Age: 20426 Day
  Sex: Female

DRUGS (13)
  1. NEXIUM [Suspect]
     Indication: GASTROOESOPHAGEAL REFLUX DISEASE
     Route: 048
     Dates: start: 1999, end: 2006
  2. NEXIUM [Suspect]
     Indication: GASTROOESOPHAGEAL REFLUX DISEASE
     Dosage: ONCE A DAY
     Route: 048
  3. NEXIUM [Suspect]
     Indication: GASTROOESOPHAGEAL REFLUX DISEASE
     Dosage: 40 MG TK ONE C PO QD PRN
     Route: 048
     Dates: start: 20030813
  4. NEXIUM [Suspect]
     Indication: GASTROOESOPHAGEAL REFLUX DISEASE
     Route: 048
     Dates: start: 2003, end: 2005
  5. PROTONIX [Concomitant]
     Dates: start: 1998, end: 1999
  6. PROTONIX [Concomitant]
     Route: 048
     Dates: start: 20011230
  7. TAGAMET [Concomitant]
     Dosage: ONCE A DAY
  8. MYLANTA [Concomitant]
     Indication: DYSPEPSIA
  9. AMOXICILLIN [Concomitant]
     Dosage: 500 MG TK 2 CS PO NOW THEN 1 C TID UNTIL GONE
     Route: 048
     Dates: start: 20020805
  10. RANITIDINE [Concomitant]
     Route: 048
     Dates: start: 20030813
  11. ZELNORM [Concomitant]
     Dosage: 6 MG TK ONE T PO 20 MINUTES PRIOR TO BREAKFAST AND DINNER
     Route: 048
     Dates: start: 20030813
  12. LIPITOR [Concomitant]
     Route: 048
     Dates: start: 20031115
  13. AMBIEN [Concomitant]
     Dosage: 10 MG TK 1/2 TO 1 T PO QHS PRN
     Route: 048
     Dates: start: 20030506

REACTIONS (3)
  - Osteoporosis [Unknown]
  - Multiple fractures [Unknown]
  - Foot fracture [Unknown]
